FAERS Safety Report 8538704-1 (Version None)
Quarter: 2012Q3

REPORT INFORMATION
  Report Type: 
  Country: None (occurrence: None)
  Receive Date: 20120713
  Receipt Date: 20120709
  Transmission Date: 20120928
  Serious: Yes (Life-Threatening, Hospitalization, Congenital Anomaly, Other)
  Sender: FDA-Public Use
  Company Number: GER/GER/12/0024972

PATIENT
  Sex: Female
  Weight: 3.5 kg

DRUGS (3)
  1. FOLSAURE (FOLIC ACID) [Concomitant]
  2. LAMOTRIGINE [Suspect]
     Indication: PRODUCT USED FOR UNKNOWN INDICATION
     Dosage: 275 MG, DURING FIRST TRIMESTER, TRANSPLACENTAL; 500 MG, PRECON AND THROUGHOUT PREGNANCY, TRANSPLACEN
     Route: 064
     Dates: end: 20110212
  3. LAMOTRIGINE [Suspect]
     Indication: PRODUCT USED FOR UNKNOWN INDICATION
     Dosage: 275 MG, DURING FIRST TRIMESTER, TRANSPLACENTAL; 500 MG, PRECON AND THROUGHOUT PREGNANCY, TRANSPLACEN
     Route: 064
     Dates: end: 20110212

REACTIONS (13)
  - NEONATAL RESPIRATORY DISTRESS SYNDROME [None]
  - CONGENITAL ANOMALY [None]
  - MATERNAL DRUGS AFFECTING FOETUS [None]
  - TALIPES [None]
  - DYSMORPHISM [None]
  - MOVEMENT DISORDER [None]
  - CYANOSIS NEONATAL [None]
  - RETROGNATHIA [None]
  - BRADYCARDIA NEONATAL [None]
  - CONGENITAL EYELID MALFORMATION [None]
  - PYELOCALIECTASIS [None]
  - ULTRASOUND SCAN ABNORMAL [None]
  - ATRIAL SEPTAL DEFECT [None]
